FAERS Safety Report 6644860-2 (Version None)
Quarter: 2010Q1

REPORT INFORMATION
  Report Type: 
  Country: None (occurrence: None)
  Receive Date: 20100322
  Receipt Date: 20100315
  Transmission Date: 20100710
  Serious: Yes (Hospitalization)
  Sender: FDA-Public Use
  Company Number: CHPA2010US05085

PATIENT
  Sex: Female

DRUGS (1)
  1. BENEFIBER UNKNOWN (NCH) [Suspect]
     Dosage: UNK, UNK
     Route: 048

REACTIONS (2)
  - DRUG INEFFECTIVE [None]
  - MALAISE [None]
